FAERS Safety Report 7506456-X (Version None)
Quarter: 2011Q2

REPORT INFORMATION
  Report Type: 
  Country: None (occurrence: None)
  Receive Date: 20110520
  Receipt Date: 20110502
  Transmission Date: 20111010
  Serious: Yes (Death, Hospitalization, Other)
  Sender: FDA-Public Use
  Company Number: 2010P1002152

PATIENT
  Age: 67 Year
  Sex: Female

DRUGS (9)
  1. CALCIUM PLUS D [Concomitant]
  2. MULTI-VITAMIN [Concomitant]
  3. VITAMIN B-12 [Concomitant]
  4. KEPPRA [Concomitant]
  5. PANTOPRAZOLE [Concomitant]
  6. FOSAMAX (ALTNDRONA'T'E SODIUM) [Concomitant]
  7. CARBAMAZEPINE [Suspect]
     Indication: CONVULSION
     Dosage: 100 MG; X1; PO, 100 MG;TID; PO, 100 MG; QID;PO
     Route: 048
     Dates: start: 20090202, end: 20090212
  8. CARBAMAZEPINE [Suspect]
     Indication: CONVULSION
     Dosage: 100 MG; X1; PO, 100 MG;TID; PO, 100 MG; QID;PO
     Route: 048
     Dates: start: 20090130, end: 20090130
  9. CARBAMAZEPINE [Suspect]
     Indication: CONVULSION
     Dosage: 100 MG; X1; PO, 100 MG;TID; PO, 100 MG; QID;PO
     Route: 048
     Dates: start: 20090131, end: 20090201

REACTIONS (47)
  - HAEMATOCRIT DECREASED [None]
  - PATHOGEN RESISTANCE [None]
  - CONVULSION [None]
  - HYPERNATRAEMIA [None]
  - ESSENTIAL HYPERTENSION [None]
  - ANAEMIA [None]
  - INJURY [None]
  - ACUTE RESPIRATORY DISTRESS SYNDROME [None]
  - LEUKOPENIA [None]
  - CORNEAL DEGENERATION [None]
  - MENTAL DISORDER [None]
  - QUALITY OF LIFE DECREASED [None]
  - BENIGN NEOPLASM [None]
  - ACTIVITIES OF DAILY LIVING IMPAIRED [None]
  - BLOOD CALCIUM DECREASED [None]
  - ATRIAL FIBRILLATION [None]
  - RENAL FAILURE ACUTE [None]
  - PNEUMONIA STAPHYLOCOCCAL [None]
  - BLOOD OSMOLARITY DECREASED [None]
  - PAIN [None]
  - PLATELET COUNT DECREASED [None]
  - CONTINUOUS HAEMODIAFILTRATION [None]
  - UROGENITAL INFECTION FUNGAL [None]
  - GENERAL PHYSICAL HEALTH DETERIORATION [None]
  - ACINETOBACTER TEST POSITIVE [None]
  - PHOSPHORUS METABOLISM DISORDER [None]
  - MULTI-ORGAN DISORDER [None]
  - DEFORMITY [None]
  - PRODUCT QUALITY ISSUE [None]
  - BLOOD GLUCOSE INCREASED [None]
  - CENTRAL VENOUS PRESSURE DECREASED [None]
  - CANDIDA TEST POSITIVE [None]
  - ESCHERICHIA TEST POSITIVE [None]
  - CARDIAC ARREST [None]
  - BLOOD OSMOLARITY INCREASED [None]
  - EMOTIONAL DISTRESS [None]
  - PRODUCT LABEL ISSUE [None]
  - STEVENS-JOHNSON SYNDROME [None]
  - INAPPROPRIATE ANTIDIURETIC HORMONE SECRETION [None]
  - MEAN CELL VOLUME INCREASED [None]
  - BLOOD ALBUMIN DECREASED [None]
  - TOXIC EPIDERMAL NECROLYSIS [None]
  - PLEURAL EFFUSION [None]
  - SEPTIC SHOCK [None]
  - ACUTE RESPIRATORY FAILURE [None]
  - COAGULOPATHY [None]
  - ANXIETY [None]
